FAERS Safety Report 11801327 (Version 6)
Quarter: 2019Q4

REPORT INFORMATION
  Report Type: Spontaneous
  Country: US (occurrence: US)
  Receive Date: 20151204
  Receipt Date: 20191129
  Transmission Date: 20200122
  Serious: Yes (Other)
  Sender: FDA-Public Use
  Company Number: US-PFIZER INC-2015362229

PATIENT
  Age: 58 Year
  Sex: Female

DRUGS (20)
  1. NEURONTIN [Concomitant]
     Active Substance: GABAPENTIN
     Dosage: 300 MG, UNK
     Route: 048
  2. BENADRYL [Concomitant]
     Active Substance: DIPHENHYDRAMINE HYDROCHLORIDE
     Dosage: 25 MG, UNK
     Route: 048
  3. KLONOPIN [Concomitant]
     Active Substance: CLONAZEPAM
     Dosage: 2 MG, UNK
     Route: 048
  4. WELLBUTRIN [Concomitant]
     Active Substance: BUPROPION HYDROCHLORIDE
     Dosage: UNK
     Route: 048
  5. PREVACID [Concomitant]
     Active Substance: LANSOPRAZOLE
     Dosage: UNK
     Route: 048
  6. CENTRUM A TO ZINC [Concomitant]
     Active Substance: MINERALS\VITAMINS
     Dosage: UNK
     Route: 048
  7. EPINEPHRINE. [Concomitant]
     Active Substance: EPINEPHRINE
     Dosage: UNK (0.3 MG/0.3ML IM CMPK)
     Route: 030
  8. VITAMIN B COMPLEX [Concomitant]
     Active Substance: CYANOCOBALAMIN\DEXPANTHENOL\NIACINAMIDE\PYRIDOXINE HYDROCHLORIDE\RIBOFLAVIN 5^-PHOSPHATE SODIUM\THIAMINE HYDROCHLORIDE\VITAMIN B COMPLEX
     Dosage: UNK
     Route: 048
  9. SEROQUEL [Concomitant]
     Active Substance: QUETIAPINE FUMARATE
     Dosage: 25 MG, UNK
     Route: 048
  10. BIOTIN [Concomitant]
     Active Substance: BIOTIN
     Dosage: UNK
     Route: 048
  11. DELTASONE [Concomitant]
     Active Substance: PREDNISONE
     Dosage: 50 MG, UNK
     Route: 048
  12. CLARINEX [Concomitant]
     Active Substance: DESLORATADINE
     Dosage: 5 MG, UNK
     Route: 048
  13. AROMASIN [Suspect]
     Active Substance: EXEMESTANE
     Indication: BREAST CANCER FEMALE
     Dosage: 25 MG, DAILY
     Route: 048
  14. ZOLOFT [Concomitant]
     Active Substance: SERTRALINE HYDROCHLORIDE
     Dosage: 100 MG, UNK
     Route: 048
  15. VALTREX [Concomitant]
     Active Substance: VALACYCLOVIR HYDROCHLORIDE
     Dosage: 500 MG, UNK
     Route: 048
  16. VOLTAREN [Concomitant]
     Active Substance: DICLOFENAC SODIUM
     Dosage: UNK (1% EXT GEL)
  17. VITAMIN B12 [Concomitant]
     Active Substance: CYANOCOBALAMIN
     Dosage: 5000 UG, UNK
     Route: 060
  18. DUEXIS [Concomitant]
     Active Substance: FAMOTIDINE\IBUPROFEN
     Dosage: IBUPROFEN 800/ FAMOTIDINE 26.6 MG
     Route: 048
  19. XANAX [Concomitant]
     Active Substance: ALPRAZOLAM
     Dosage: 1 MG, UNK
     Route: 048
  20. CALCIUM CARBONATE/VITAMIN D3 [Concomitant]
     Active Substance: CALCIUM CARBONATE\CHOLECALCIFEROL

REACTIONS (7)
  - Expired product administered [Unknown]
  - Arthritis [Unknown]
  - Obsessive-compulsive disorder [Unknown]
  - Full blood count decreased [Unknown]
  - Neuropathy peripheral [Unknown]
  - Fungal infection [Unknown]
  - Nausea [Unknown]
